FAERS Safety Report 16429579 (Version 4)
Quarter: 2021Q2

REPORT INFORMATION
  Report Type: Report from Study
  Country: CN (occurrence: CN)
  Receive Date: 20190614
  Receipt Date: 20210402
  Transmission Date: 20210716
  Serious: Yes (Hospitalization)
  Sender: FDA-Public Use
  Company Number: CN-TEVA-2019-CN-1061066

PATIENT
  Age: 60 Year
  Sex: Female
  Weight: 58 kg

DRUGS (6)
  1. MADOPAR [Concomitant]
     Active Substance: BENSERAZIDE HYDROCHLORIDE\LEVODOPA
     Dosage: 375 MILLIGRAM DAILY;
     Route: 048
     Dates: start: 20190415, end: 20190525
  2. SIFROL/PRAMIPEXOLE [Concomitant]
     Indication: PARKINSON^S DISEASE
     Dosage: .125 MILLIGRAM DAILY;
     Route: 048
     Dates: start: 20190415, end: 201905
  3. AZILECT [Suspect]
     Active Substance: RASAGILINE MESYLATE
     Indication: PARKINSON^S DISEASE
     Dosage: 1 MILLIGRAM DAILY;
     Route: 048
     Dates: start: 20190318, end: 20190506
  4. BROMOCRIPTINE MESILATE TABLETS [Concomitant]
     Indication: PARKINSON^S DISEASE
     Route: 048
     Dates: start: 20190527
  5. MADOPAR [Concomitant]
     Active Substance: BENSERAZIDE HYDROCHLORIDE\LEVODOPA
     Dosage: 1500 MILLIGRAM DAILY;
     Route: 048
     Dates: start: 20190526, end: 20190526
  6. MADOPAR [Concomitant]
     Active Substance: BENSERAZIDE HYDROCHLORIDE\LEVODOPA
     Indication: PARKINSON^S DISEASE
     Dosage: 750 MILLIGRAM DAILY;
     Route: 048
     Dates: start: 20190527

REACTIONS (1)
  - Acute disseminated encephalomyelitis [Not Recovered/Not Resolved]

NARRATIVE: CASE EVENT DATE: 20190527
